FAERS Safety Report 18531894 (Version 1)
Quarter: 2020Q4

REPORT INFORMATION
  Report Type: Other
  Country: AU (occurrence: AU)
  Receive Date: 20201123
  Receipt Date: 20201123
  Transmission Date: 20210114
  Serious: Yes (Congenital Anomaly)
  Sender: FDA-Public Use
  Company Number: AU-DEXPHARM-20201054

PATIENT
  Sex: Male

DRUGS (2)
  1. LEVETIRACETAM. [Suspect]
     Active Substance: LEVETIRACETAM
  2. VALPROIC ACID. [Interacting]
     Active Substance: VALPROIC ACID

REACTIONS (2)
  - Drug interaction [Unknown]
  - Talipes [Unknown]
